FAERS Safety Report 4399312-X (Version None)
Quarter: 2004Q3

REPORT INFORMATION
  Report Type: 
  Country: None (occurrence: None)
  Receive Date: 20040716
  Receipt Date: 20040713
  Transmission Date: 20050211
  Serious: Yes (Hospitalization)
  Sender: FDA-Public Use
  Company Number: PHRM2004FR02346

PATIENT
  Age: 58 Year
  Sex: Female

DRUGS (1)
  1. GYNERGENE CAFEINE [Suspect]
     Indication: MIGRAINE
     Dosage: PRN
     Route: 048

REACTIONS (1)
  - EPILEPSY [None]
